FAERS Safety Report 7455356-2 (Version None)
Quarter: 2011Q1

REPORT INFORMATION
  Report Type: 
  Country: None (occurrence: None)
  Receive Date: 20110302
  Receipt Date: 20110106
  Transmission Date: 20110831
  Serious: No
  Sender: FDA-Public Use
  Company Number: 024957

PATIENT
  Sex: Male

DRUGS (1)
  1. CIMZIA [Suspect]
     Indication: CROHN'S DISEASE
     Dosage: SUBCUTANEOUS
     Route: 058
     Dates: start: 20100701, end: 20101125

REACTIONS (10)
  - ABDOMINAL PAIN [None]
  - NAUSEA [None]
  - PYREXIA [None]
  - ANAL FISTULA [None]
  - DIARRHOEA [None]
  - NASOPHARYNGITIS [None]
  - NASAL CONGESTION [None]
  - COUGH [None]
  - HAEMATOCHEZIA [None]
  - SNEEZING [None]
